FAERS Safety Report 7357770-2 (Version None)
Quarter: 2011Q1

REPORT INFORMATION
  Report Type: 
  Country: None (occurrence: None)
  Receive Date: 20110317
  Receipt Date: 20110310
  Transmission Date: 20110831
  Serious: Yes (Other)
  Sender: FDA-Public Use
  Company Number: CA-US-EMD SERONO, INC.-7046836

PATIENT
  Sex: Female

DRUGS (6)
  1. REBIF [Suspect]
     Indication: RELAPSING-REMITTING MULTIPLE SCLEROSIS
     Dates: start: 20090908
  2. VITAMIN D [Concomitant]
  3. MULTI-VITAMINS [Concomitant]
  4. CITALOPRAM HYDROBROMIDE [Concomitant]
  5. VITAMIN B-12 [Concomitant]
  6. NUVARING [Concomitant]

REACTIONS (9)
  - NAUSEA [None]
  - APHAGIA [None]
  - OVARIAN CYST [None]
  - INSOMNIA [None]
  - INAPPROPRIATE SCHEDULE OF DRUG ADMINISTRATION [None]
  - ENDOMETRIOSIS [None]
  - MALAISE [None]
  - ASTHENIA [None]
  - DEPRESSED MOOD [None]
